FAERS Safety Report 20711355 (Version 1)
Quarter: 2022Q2

REPORT INFORMATION
  Report Type: Spontaneous
  Country: US (occurrence: US)
  Receive Date: 20220414
  Receipt Date: 20220414
  Transmission Date: 20220721
  Serious: No
  Sender: FDA-Public Use
  Company Number: US-PFIZER INC-202100935802

PATIENT
  Age: 79 Year
  Sex: Male

DRUGS (3)
  1. INLYTA [Suspect]
     Active Substance: AXITINIB
     Dosage: 5 MG
     Dates: start: 20210701
  2. INLYTA [Suspect]
     Active Substance: AXITINIB
     Dosage: 5 MG
     Dates: start: 20210716
  3. INLYTA [Suspect]
     Active Substance: AXITINIB
     Dosage: 5 MG
     Dates: start: 20210719

REACTIONS (7)
  - Memory impairment [Unknown]
  - Fatigue [Unknown]
  - Tongue disorder [Unknown]
  - Dry mouth [Unknown]
  - Tongue ulceration [Unknown]
  - Thyroid disorder [Unknown]
  - Lymphadenopathy [Unknown]
